FAERS Safety Report 5025821-6 (Version None)
Quarter: 2006Q2

REPORT INFORMATION
  Report Type: 
  Country: None (occurrence: None)
  Receive Date: 20060427
  Receipt Date: 20050415
  Transmission Date: 20061013
  Serious: Yes (Other)
  Sender: FDA-Public Use
  Company Number: 2005062634

PATIENT
  Age: 80 Year
  Sex: Female

DRUGS (9)
  1. ZITHROMAX [Suspect]
     Indication: PNEUMONIA
     Dosage: 500 MG (500 MG, DAILY), INTRAVENOUS
     Route: 042
     Dates: start: 20050406, end: 20050407
  2. SALBUTAMOL (SALBUTAMOL) [Concomitant]
  3. IPRATROPIUM BROMIDE [Concomitant]
  4. ASPIRIN [Concomitant]
  5. NEOTRACIN                (BACITRACIN, NEOMYCIN SULFATE, POLYMIXIN B SU [Concomitant]
  6. DILTIAZEM HYDROCHLORIDE [Concomitant]
  7. FAMOTIDINE [Concomitant]
  8. ALL OTHER THERAPEUTIC PRODUCTS [Concomitant]
  9. MECLOZINE (MECLOZINE) [Concomitant]

REACTIONS (1)
  - ADMINISTRATION SITE REACTION [None]
